FAERS Safety Report 9994931 (Version 1)
Quarter: 2014Q1

REPORT INFORMATION
  Report Type: Spontaneous
  Country: US (occurrence: None)
  Receive Date: 20140214
  Receipt Date: 20140214
  Transmission Date: 20141002
  Serious: Yes (Hospitalization)
  Sender: FDA-Public Use
  Company Number: 1000050712

PATIENT
  Age: 54 Year
  Sex: Male

DRUGS (2)
  1. BYSTOLIC [Suspect]
     Indication: HYPERTENSION
     Dates: end: 2013
  2. BYSTOLIC [Suspect]
     Indication: HYPERTENSION
     Dates: start: 2013

REACTIONS (1)
  - Atrioventricular block complete [None]
